FAERS Safety Report 15531881 (Version 2)
Quarter: 2018Q4

REPORT INFORMATION
  Report Type: Report from Study
  Country: None (occurrence: DE)
  Receive Date: 20181019
  Receipt Date: 20181027
  Transmission Date: 20190205
  Serious: Yes (Hospitalization)
  Sender: FDA-Public Use
  Company Number: DE-ABBVIE-18K-062-2520961-00

PATIENT
  Sex: Female
  Weight: 75 kg

DRUGS (2)
  1. HUMIRA [Suspect]
     Active Substance: ADALIMUMAB
     Indication: CROHN^S DISEASE
     Route: 058
     Dates: start: 20170901
  2. AZATHIOPRIN [Concomitant]
     Active Substance: AZATHIOPRINE
     Indication: CROHN^S DISEASE
     Dosage: TO REDUCE GRADUALLY
     Dates: start: 201707

REACTIONS (8)
  - Thyroid disorder [Not Recovered/Not Resolved]
  - Diarrhoea [Unknown]
  - Bipolar disorder [Not Recovered/Not Resolved]
  - Hypothyroidism [Unknown]
  - Injection site pain [Unknown]
  - Injection site reaction [Unknown]
  - Injection site swelling [Unknown]
  - Injection site erythema [Unknown]

NARRATIVE: CASE EVENT DATE: 20170901
